FAERS Safety Report 19246076 (Version 1)
Quarter: 2021Q2

REPORT INFORMATION
  Report Type: Spontaneous
  Country: US (occurrence: US)
  Receive Date: 20210511
  Receipt Date: 20210511
  Transmission Date: 20210717
  Serious: No
  Sender: FDA-Public Use
  Company Number: None

PATIENT
  Age: 70 Year
  Sex: Male
  Weight: 108.2 kg

DRUGS (4)
  1. OXYCODONE/ACETAMINOPHEN [Concomitant]
     Active Substance: ACETAMINOPHEN\OXYCODONE HYDROCHLORIDE
     Dates: start: 20190605
  2. METHOTREXATE. [Concomitant]
     Active Substance: METHOTREXATE
     Dates: start: 20170802
  3. ABATACEPT [Suspect]
     Active Substance: ABATACEPT
     Indication: RHEUMATOID ARTHRITIS
     Dosage: ?          OTHER FREQUENCY:EVERY 14 DAYS;?
     Route: 042
     Dates: start: 20210507
  4. PREDNISONE. [Concomitant]
     Active Substance: PREDNISONE
     Dates: start: 20170802

REACTIONS (7)
  - Dyspnoea [None]
  - Pruritus [None]
  - Hypersensitivity [None]
  - Infusion related reaction [None]
  - Chest pain [None]
  - Throat tightness [None]
  - Flushing [None]

NARRATIVE: CASE EVENT DATE: 20210507
